FAERS Safety Report 6416588-5 (Version None)
Quarter: 2009Q4

REPORT INFORMATION
  Report Type: 
  Country: None (occurrence: None)
  Receive Date: 20091023
  Receipt Date: 20091010
  Transmission Date: 20100525
  Serious: Yes (Other)
  Sender: FDA-Public Use
  Company Number: 1-20392190

PATIENT
  Sex: Female

DRUGS (1)
  1. METHIMAZOLE [Suspect]

REACTIONS (4)
  - AGRANULOCYTOSIS [None]
  - FUNGAL RHINITIS [None]
  - MUCORMYCOSIS [None]
  - ORAL FUNGAL INFECTION [None]
